FAERS Safety Report 7455936-4 (Version None)
Quarter: 2011Q2

REPORT INFORMATION
  Report Type: 
  Country: None (occurrence: None)
  Receive Date: 20110503
  Receipt Date: 20110421
  Transmission Date: 20111010
  Serious: Yes (Death)
  Sender: FDA-Public Use
  Company Number: PHHY2011GB36229

PATIENT
  Age: 54 Year
  Sex: Male

DRUGS (2)
  1. FLUDARABINE [Suspect]
     Indication: FOLLICLE CENTRE LYMPHOMA, FOLLICULAR GRADE I, II, III
     Dosage: UNK UKN, UNK
  2. CYCLOPHOSPHAMIDE [Suspect]
     Indication: FOLLICLE CENTRE LYMPHOMA, FOLLICULAR GRADE I, II, III
     Dosage: UNK UKN, UNK

REACTIONS (4)
  - NEUTROPENIA [None]
  - FUNGAL INFECTION [None]
  - PYREXIA [None]
  - SEPSIS [None]
